FAERS Safety Report 4652047-8 (Version None)
Quarter: 2005Q2

REPORT INFORMATION
  Report Type: 
  Country: None (occurrence: None)
  Receive Date: 20050502
  Receipt Date: 20050502
  Transmission Date: 20051028
  Serious: Yes (Other)
  Sender: FDA-Public Use
  Company Number: None

PATIENT
  Sex: Male
  Weight: 117.9352 kg

DRUGS (7)
  1. ZINCUM GLUCONICUM (ZN)  ZICAM [Suspect]
     Indication: COUGH
     Dosage: 1 SPRAY/NOST   EVERY 6 HOURS  NASAL
     Route: 045
     Dates: start: 20050201, end: 20050204
  2. ZINCUM GLUCONICUM (ZN)  ZICAM [Suspect]
     Indication: INFLUENZA
     Dosage: 1 SPRAY/NOST   EVERY 6 HOURS  NASAL
     Route: 045
     Dates: start: 20050201, end: 20050204
  3. ZINCUM GLUCONICUM (ZN)  ZICAM [Suspect]
     Indication: NASOPHARYNGITIS
     Dosage: 1 SPRAY/NOST   EVERY 6 HOURS  NASAL
     Route: 045
     Dates: start: 20050201, end: 20050204
  4. ZINCUM GLUCONICUM (ZN)  ZICAM [Suspect]
     Indication: PYREXIA
     Dosage: 1 SPRAY/NOST   EVERY 6 HOURS  NASAL
     Route: 045
     Dates: start: 20050201, end: 20050204
  5. ZINCUM GLUCONICUM (ZN)  ZICAM [Suspect]
     Indication: RHINORRHOEA
     Dosage: 1 SPRAY/NOST   EVERY 6 HOURS  NASAL
     Route: 045
     Dates: start: 20050201, end: 20050204
  6. CLARITIN [Concomitant]
  7. NYQUIL [Concomitant]

REACTIONS (3)
  - AGEUSIA [None]
  - ANOSMIA [None]
  - NASAL DISCOMFORT [None]
